FAERS Safety Report 26215497 (Version 1)
Quarter: 2025Q4

REPORT INFORMATION
  Report Type: Spontaneous
  Country: EU (occurrence: EU)
  Receive Date: 20251231
  Receipt Date: 20251231
  Transmission Date: 20260117
  Serious: Yes (Hospitalization)
  Sender: NOVARTIS
  Company Number: None

PATIENT
  Age: 55 Year
  Sex: Female

DRUGS (1)
  1. VOTRIENT [Suspect]
     Active Substance: PAZOPANIB HYDROCHLORIDE
     Indication: Pleomorphic leiomyosarcoma
     Dosage: 800 MG, Q24H (VOTRIENT 400 MG FILM-COATED TABLETS, 60 TABLETS)
     Route: 048
     Dates: start: 20250923, end: 20251107

REACTIONS (2)
  - Hepatocellular injury [Recovering/Resolving]
  - Pancytopenia [Recovered/Resolved]

NARRATIVE: CASE EVENT DATE: 20251107
